FAERS Safety Report 22006888 (Version 1)
Quarter: 2023Q1

REPORT INFORMATION
  Report Type: Spontaneous
  Country: FR (occurrence: FR)
  Receive Date: 20230217
  Receipt Date: 20230217
  Transmission Date: 20230417
  Serious: Yes (Other)
  Sender: FDA-Public Use
  Company Number: FR-FreseniusKabi-FK202302068

PATIENT
  Age: 61 Year
  Sex: Female

DRUGS (2)
  1. PACLITAXEL [Suspect]
     Active Substance: PACLITAXEL
     Indication: Bronchial anastomosis
     Dosage: SALVAGE CHEMOTHERAPY WEEKLY
     Dates: start: 20220622, end: 20220624
  2. CARBOPLATIN [Suspect]
     Active Substance: CARBOPLATIN
     Indication: Bronchial anastomosis
     Dosage: SALVAGE CHEMOTHERAPY WEEKLY
     Dates: start: 20220622, end: 20220624

REACTIONS (2)
  - Disseminated intravascular coagulation [Recovered/Resolved]
  - Thrombotic microangiopathy [Recovered/Resolved]
